FAERS Safety Report 10823882 (Version 1)
Quarter: 2015Q1

REPORT INFORMATION
  Report Type: Spontaneous
  Country: US (occurrence: None)
  Receive Date: 20150218
  Receipt Date: 20150218
  Transmission Date: 20150721
  Serious: No
  Sender: FDA-Public Use
  Company Number: None

PATIENT
  Age: 4 Year
  Sex: Female
  Weight: 18.14 kg

DRUGS (1)
  1. DYE-FREE CHILDREN^S ACETAMINOPHE 160 MG [Suspect]
     Active Substance: ACETAMINOPHEN
     Indication: ANTIPYRESIS
     Dates: start: 20150214, end: 20150215

REACTIONS (7)
  - Palpitations [None]
  - Crying [None]
  - Tremor [None]
  - Product substitution issue [None]
  - Discomfort [None]
  - Product quality issue [None]
  - Conversion disorder [None]

NARRATIVE: CASE EVENT DATE: 20150214
